FAERS Safety Report 7803173-3 (Version None)
Quarter: 2011Q4

REPORT INFORMATION
  Report Type: 
  Country: None (occurrence: None)
  Receive Date: 20111007
  Receipt Date: 20111005
  Transmission Date: 20120403
  Serious: Yes (Hospitalization)
  Sender: FDA-Public Use
  Company Number: UA-EISAI INC-E2090-01759-CLI-UA

PATIENT
  Sex: Female
  Weight: 84.4 kg

DRUGS (4)
  1. ZONISAMIDE [Suspect]
     Indication: EPILEPSY
     Dosage: DOUBLE-BLIND
     Route: 048
     Dates: start: 20101208
  2. ZONISAMIDE [Suspect]
     Route: 048
     Dates: start: 20110126
  3. VALPROATE SODIUM [Concomitant]
     Indication: EPILEPSY
     Route: 048
     Dates: start: 20100101
  4. CLONAZEPAM [Concomitant]
     Indication: EPILEPSY
     Route: 048
     Dates: start: 20100101

REACTIONS (1)
  - FOOT FRACTURE [None]
